FAERS Safety Report 9704039 (Version 2)
Quarter: 2013Q4

REPORT INFORMATION
  Report Type: Spontaneous
  Country: US (occurrence: US)
  Receive Date: 20131122
  Receipt Date: 20131122
  Transmission Date: 20140711
  Serious: Yes (Other)
  Sender: FDA-Public Use
  Company Number: US-FRI-1000007060

PATIENT
  Age: 59 Year
  Sex: Male

DRUGS (13)
  1. ARMOUR THYROID [Suspect]
     Indication: HYPOTHYROIDISM
     Dosage: 90 MG
     Route: 048
     Dates: start: 200903, end: 2009
  2. ARMOUR THYROID [Suspect]
     Indication: HYPOTHYROIDISM
     Dosage: 45 MG
     Route: 048
     Dates: start: 2009, end: 2009
  3. ARMOUR THYROID [Suspect]
     Indication: HYPOTHYROIDISM
     Dosage: 30 MG
     Route: 048
     Dates: start: 2009, end: 2009
  4. ARMOUR THYROID [Suspect]
     Dosage: 15 MG
     Route: 048
     Dates: start: 200904
  5. ARMOUR THYROID [Suspect]
     Indication: HYPOTHYROIDISM
     Dosage: 15 MG
     Route: 048
     Dates: start: 2009, end: 2009
  6. ARMOUR THYROID [Suspect]
     Indication: HYPOTHYROIDISM
     Dosage: 15 MG
     Route: 048
     Dates: start: 201003, end: 201004
  7. ARMOUR THYROID [Suspect]
     Dosage: 30 MG
     Route: 048
     Dates: start: 20100420
  8. ARMOUR THYROID [Suspect]
     Dosage: 30 MG BID
     Route: 048
  9. HYDROCODONE [Concomitant]
     Indication: PAIN
  10. CLONAZEPAM [Concomitant]
     Indication: ANXIETY
     Dosage: 1.5 MG
     Route: 048
  11. VITAMINS [Concomitant]
  12. GINSENG [Concomitant]
     Indication: SUPPLEMENTATION THERAPY
     Route: 048
  13. HERBAL REMEDY (NOS) [Concomitant]
     Indication: THYROID THERAPY

REACTIONS (20)
  - Vascular occlusion [Unknown]
  - Thyroiditis [Unknown]
  - Goitre [Unknown]
  - Palpitations [Recovered/Resolved]
  - Tremor [Unknown]
  - Diarrhoea [Unknown]
  - Skin lesion [Unknown]
  - Drug ineffective [Unknown]
  - Thyroid function test abnormal [Unknown]
  - Thyroxine decreased [Unknown]
  - Tri-iodothyronine increased [Unknown]
  - Rosacea [Recovering/Resolving]
  - Skin lesion [Unknown]
  - Respiratory rate increased [Unknown]
  - Hyperhidrosis [Unknown]
  - Headache [Unknown]
  - Tinnitus [Unknown]
  - Hypoaesthesia [Unknown]
  - Abdominal discomfort [Recovering/Resolving]
  - Feeling abnormal [Not Recovered/Not Resolved]
